FAERS Safety Report 8057414-0 (Version None)
Quarter: 2012Q1

REPORT INFORMATION
  Report Type: 
  Country: None (occurrence: None)
  Receive Date: 20120119
  Receipt Date: 20120110
  Transmission Date: 20120608
  Serious: Yes (Other)
  Sender: FDA-Public Use
  Company Number: SI-ROCHE-1031193

PATIENT
  Sex: Female

DRUGS (3)
  1. RANIBIZUMAB [Suspect]
     Dates: start: 20110303
  2. RANIBIZUMAB [Suspect]
     Dates: start: 20101213
  3. RANIBIZUMAB [Suspect]
     Indication: AGE-RELATED MACULAR DEGENERATION
     Route: 050
     Dates: start: 20101115

REACTIONS (4)
  - DRUG INEFFECTIVE [None]
  - ASTHENIA [None]
  - VISUAL ACUITY REDUCED [None]
  - ILEUS [None]
